FAERS Safety Report 23149986 (Version 2)
Quarter: 2023Q4

REPORT INFORMATION
  Report Type: Spontaneous
  Country: US (occurrence: US)
  Receive Date: 20231106
  Receipt Date: 20231222
  Transmission Date: 20240110
  Serious: No
  Sender: FDA-Public Use
  Company Number: US-PFIZER INC-PV202300180178

PATIENT
  Age: 70 Year
  Sex: Female
  Weight: 78.458 kg

DRUGS (3)
  1. IBRANCE [Suspect]
     Active Substance: PALBOCICLIB
     Indication: Neoplasm malignant
     Dosage: ONCE A DAY
     Dates: start: 20230815
  2. COSARTAN [LOSARTAN POTASSIUM] [Concomitant]
     Dosage: ONCE A DAY, ONLY AS NEEDED
  3. AMLODIPINE [Concomitant]
     Active Substance: AMLODIPINE BESYLATE
     Dosage: ONCE A DAY, ONLY AS NEEDED

REACTIONS (1)
  - Daydreaming [Unknown]
